FAERS Safety Report 24718086 (Version 1)
Quarter: 2024Q4

REPORT INFORMATION
  Report Type: Spontaneous
  Country: US (occurrence: None)
  Receive Date: 20241209
  Receipt Date: 20241209
  Transmission Date: 20250115
  Serious: Yes (Other)
  Sender: Public
  Company Number: None

PATIENT
  Age: 38 Year
  Sex: Female

DRUGS (1)
  1. NEUTROGENA CLEAR FACE SPF50 [Suspect]
     Active Substance: AVOBENZONE\HOMOSALATE\OCTISALATE\OCTOCRYLENE
     Dosage: OTHER STRENGTH : 1;?OTHER QUANTITY : 1 EVERY 50 MINUTES;?FREQUENCY : AS NEEDED;?
     Route: 061
     Dates: start: 20240822, end: 20240822

REACTIONS (5)
  - Application site burn [None]
  - Scab [None]
  - Pain [None]
  - Scar [None]
  - Pain [None]

NARRATIVE: CASE EVENT DATE: 20240822
